FAERS Safety Report 15867174 (Version 2)
Quarter: 2019Q2

REPORT INFORMATION
  Report Type: Report from Study
  Country: DE (occurrence: DE)
  Receive Date: 20190125
  Receipt Date: 20190405
  Transmission Date: 20190711
  Serious: Yes (Hospitalization)
  Sender: FDA-Public Use
  Company Number: PHHO2019DE000817

PATIENT
  Age: 15 Year
  Sex: Male
  Weight: 70 kg

DRUGS (2)
  1. GILENYA [Suspect]
     Active Substance: FINGOLIMOD HYDROCHLORIDE
     Indication: MULTIPLE SCLEROSIS
     Dosage: 0.5 MG, QD
     Route: 048
     Dates: start: 20160629
  2. PLACEBO [Suspect]
     Active Substance: UNSPECIFIED INGREDIENT
     Indication: MULTIPLE SCLEROSIS
     Dosage: UNK
     Route: 048

REACTIONS (6)
  - Aphthous ulcer [Not Recovered/Not Resolved]
  - Essential hypertension [Recovering/Resolving]
  - Oral herpes [Recovered/Resolved]
  - Acute kidney injury [Recovered/Resolved]
  - Oral herpes [Not Recovered/Not Resolved]
  - Aphthous ulcer [Recovered/Resolved]

NARRATIVE: CASE EVENT DATE: 20190106
